FAERS Safety Report 12450538 (Version 4)
Quarter: 2016Q3

REPORT INFORMATION
  Report Type: Spontaneous
  Country: IT (occurrence: IT)
  Receive Date: 20160609
  Receipt Date: 20160915
  Transmission Date: 20161109
  Serious: Yes (Hospitalization, Other)
  Sender: FDA-Public Use
  Company Number: IT-SUN PHARMACEUTICAL INDUSTRIES LTD-2016RR-118123

PATIENT
  Age: 28 Year
  Sex: Female

DRUGS (4)
  1. EPINEPHRINE. [Concomitant]
     Active Substance: EPINEPHRINE
     Indication: ANAESTHESIA
     Dosage: 1:200,000
     Route: 065
  2. SALINE [Concomitant]
     Active Substance: SODIUM CHLORIDE
     Indication: PRODUCT USED FOR UNKNOWN INDICATION
     Route: 065
  3. PARACETAMOL 500 MG, CODEINE 30 MG [Suspect]
     Active Substance: ACETAMINOPHEN\CODEINE PHOSPHATE
     Indication: ANALGESIC THERAPY
     Dosage: ONE SACHET AS REQUIRED, WITH A MAXIMUM OF THREE SACHETS DAILY
     Route: 065
  4. MEPIVACAINE 2% [Concomitant]
     Indication: ANAESTHESIA
     Route: 065

REACTIONS (1)
  - Pancreatitis acute [Recovered/Resolved]
